FAERS Safety Report 21579826 (Version 1)
Quarter: 2022Q4

REPORT INFORMATION
  Report Type: Spontaneous
  Country: FR (occurrence: FR)
  Receive Date: 20221110
  Receipt Date: 20221110
  Transmission Date: 20230113
  Serious: Yes (Hospitalization)
  Sender: FDA-Public Use
  Company Number: None

PATIENT
  Age: 87 Year
  Sex: Male
  Weight: 60.9 kg

DRUGS (11)
  1. LINEZOLID [Suspect]
     Active Substance: LINEZOLID
     Indication: Pneumonia
     Dosage: 600 MG, 2X/DAY (AT 8.00 AM AND 08.00 PM)
     Dates: start: 20220105, end: 20220119
  2. PIPERACILLIN SODIUM\TAZOBACTAM SODIUM [Suspect]
     Active Substance: PIPERACILLIN SODIUM\TAZOBACTAM SODIUM
     Indication: Pneumonia
     Dosage: 16 G, 1X/DAY
     Dates: start: 20220103, end: 20220117
  3. VITAMINS [Suspect]
     Active Substance: VITAMINS
     Dosage: 50 DROPS AT 10.00 AM
     Dates: start: 20211214, end: 20220113
  4. VIDAZA [Suspect]
     Active Substance: AZACITIDINE
     Indication: Acute myeloid leukaemia
     Dosage: UNK
     Dates: start: 202201
  5. VALACYCLOVIR [Suspect]
     Active Substance: VALACYCLOVIR HYDROCHLORIDE
     Dosage: 500 MG, 2X/DAY (AT 08.00 AM AND AT 08.00 PM)
     Dates: start: 20220103, end: 20220113
  6. OXAZEPAM [Concomitant]
     Active Substance: OXAZEPAM
     Dosage: 10 MG, 1X/DAY AT BEDTIME
  7. FUNGIZONE [Concomitant]
     Active Substance: AMPHOTERICIN B
     Dosage: 3 FOIS PAR JOUR
  8. PRIMPERAN [Concomitant]
     Active Substance: METOCLOPRAMIDE HYDROCHLORIDE
     Dosage: 10 MG
  9. FUROSEMIDE [Concomitant]
     Active Substance: FUROSEMIDE
     Dosage: 1 TABLET OF 40MG IN THE MORNING AND 1/2 TABLET AT MIDDAY (TO REASSESS IN FUNCTION HYDRATION STATE)
  10. POTASSIUM CHLORIDE [Concomitant]
     Active Substance: POTASSIUM CHLORIDE
     Dosage: 2000 MG, 3X/DAY (MORNING, MIDDAY AND EVENING) (TO REASSESS IN FUNCTION OF IONOGRAM)
  11. CALCIUM CARBONATE [Concomitant]
     Active Substance: CALCIUM CARBONATE
     Dosage: 1 SACHET AT 10.00 AM, AT 03 PM

REACTIONS (4)
  - Hepatitis acute [Recovering/Resolving]
  - Diarrhoea [Recovering/Resolving]
  - Hepatic failure [Recovering/Resolving]
  - Off label use [Unknown]

NARRATIVE: CASE EVENT DATE: 20220103
